FAERS Safety Report 9366291 (Version 2)
Quarter: 2013Q3

REPORT INFORMATION
  Report Type: Spontaneous
  Country: JP (occurrence: JP)
  Receive Date: 20130625
  Receipt Date: 20130722
  Transmission Date: 20140515
  Serious: No
  Sender: FDA-Public Use
  Company Number: JP-PFIZER INC-2013183757

PATIENT
  Age: 77 Year
  Sex: Female
  Weight: 54 kg

DRUGS (4)
  1. TOVIAZ [Suspect]
     Indication: HYPERTONIC BLADDER
     Dosage: 4 MG, 1X/DAY
     Route: 048
     Dates: start: 20130606, end: 20130606
  2. TOVIAZ [Suspect]
     Dosage: 2 MG, 1X/DAY
     Route: 048
     Dates: start: 20130607, end: 20130613
  3. ESTRIOL [Concomitant]
     Dosage: UNK
     Dates: start: 20130606, end: 20130606
  4. CHLOMY [Concomitant]
     Dosage: UNK
     Dates: start: 20130606, end: 20130606

REACTIONS (2)
  - Palpitations [Recovered/Resolved]
  - Atrioventricular block first degree [Not Recovered/Not Resolved]
